FAERS Safety Report 25765010 (Version 1)
Quarter: 2025Q3

REPORT INFORMATION
  Report Type: Spontaneous
  Country: US (occurrence: US)
  Receive Date: 20250905
  Receipt Date: 20250905
  Transmission Date: 20251021
  Serious: Yes (Other)
  Sender: VALIDUS
  Company Number: US-VALIDUS PHARMACEUTICALS LLC-VLDS-RB-2025-00193

PATIENT

DRUGS (15)
  1. LASIX [Suspect]
     Active Substance: FUROSEMIDE
     Indication: Pulmonary oedema
     Route: 065
  2. ATORVASTATIN CALCIUM [Concomitant]
     Active Substance: ATORVASTATIN CALCIUM
     Indication: Product used for unknown indication
     Route: 065
  3. VITAMINS [Concomitant]
     Active Substance: VITAMINS
     Indication: Product used for unknown indication
     Route: 065
  4. FLUTICASONE PROPIONATE [Concomitant]
     Active Substance: FLUTICASONE PROPIONATE
     Indication: Product used for unknown indication
     Route: 065
  5. MYCOPHENOLATE MOFETIL [Concomitant]
     Active Substance: MYCOPHENOLATE MOFETIL
     Indication: Product used for unknown indication
     Route: 065
  6. OXYGEN [Concomitant]
     Active Substance: OXYGEN
     Indication: Product used for unknown indication
     Route: 065
  7. SODIUM CHLORIDE [Concomitant]
     Active Substance: SODIUM CHLORIDE
     Indication: Product used for unknown indication
     Route: 045
  8. SILDENAFIL CITRATE [Concomitant]
     Active Substance: SILDENAFIL CITRATE
     Indication: Product used for unknown indication
     Route: 065
  9. SILDENAFIL CITRATE [Concomitant]
     Active Substance: SILDENAFIL CITRATE
     Route: 065
     Dates: start: 2025
  10. SUDAFED [Concomitant]
     Active Substance: PSEUDOEPHEDRINE HYDROCHLORIDE
     Indication: Product used for unknown indication
     Route: 065
  11. TYVASO DPI [Concomitant]
     Active Substance: TREPROSTINIL
     Indication: Pulmonary arterial hypertension
     Dates: start: 20251206, end: 2025
  12. TYVASO DPI [Concomitant]
     Active Substance: TREPROSTINIL
     Dates: start: 20250612, end: 20250625
  13. TYVASO DPI [Concomitant]
     Active Substance: TREPROSTINIL
     Dates: start: 20250723, end: 2025
  14. TYVASO DPI [Concomitant]
     Active Substance: TREPROSTINIL
     Dates: start: 2025, end: 2025
  15. TYVASO DPI [Concomitant]
     Active Substance: TREPROSTINIL
     Dates: start: 2025

REACTIONS (1)
  - Blood pressure decreased [Unknown]
